FAERS Safety Report 15802770 (Version 2)
Quarter: 2019Q1

REPORT INFORMATION
  Report Type: Report from Study
  Country: ES (occurrence: ES)
  Receive Date: 20190109
  Receipt Date: 20190305
  Transmission Date: 20190417
  Serious: Yes (Hospitalization)
  Sender: FDA-Public Use
  Company Number: ES-ROCHE-2228193

PATIENT
  Age: 72 Year
  Sex: Female

DRUGS (39)
  1. ENALAPRIL/HCT [Concomitant]
     Indication: HYPERTENSION
  2. SIMVASTATINE [Concomitant]
     Active Substance: SIMVASTATIN
     Indication: DYSLIPIDAEMIA
  3. LORAZEPAM. [Concomitant]
     Active Substance: LORAZEPAM
     Indication: PROPHYLAXIS
  4. PREDNISONA [Concomitant]
     Active Substance: PREDNISONE
     Route: 048
     Dates: start: 20181228, end: 20190111
  5. DEXKETOPROFENO [Concomitant]
     Active Substance: DEXKETOPROFEN
     Route: 065
     Dates: start: 20181130, end: 20181203
  6. TIAMAZOL [Concomitant]
     Route: 065
     Dates: start: 20181121, end: 20181123
  7. PREDNISONA [Concomitant]
     Active Substance: PREDNISONE
     Route: 048
     Dates: start: 20190111, end: 20190208
  8. DEXKETOPROFENO [Concomitant]
     Active Substance: DEXKETOPROFEN
     Indication: PAIN PROPHYLAXIS
     Route: 065
     Dates: start: 20181125, end: 20181130
  9. VITAMIN E [Concomitant]
     Active Substance: .ALPHA.-TOCOPHEROL
     Route: 065
     Dates: start: 20181126, end: 20181203
  10. PARACETAMOL [Concomitant]
     Active Substance: ACETAMINOPHEN
     Route: 065
     Dates: start: 20181130
  11. ATEZOLIZUMAB. [Suspect]
     Active Substance: ATEZOLIZUMAB
     Indication: NON-SMALL CELL LUNG CANCER
     Dosage: MOST RECENT DOSE OF ATEZOLIZUMAB PRIOR TO AE ONSET ON 07/NOV/2018
     Route: 042
     Dates: start: 20181107
  12. PREDNISONA [Concomitant]
     Active Substance: PREDNISONE
     Route: 048
     Dates: start: 20181218, end: 20181219
  13. DIAZEPAM. [Concomitant]
     Active Substance: DIAZEPAM
     Route: 065
     Dates: start: 20181125, end: 20181127
  14. PREGABALINA [Concomitant]
     Active Substance: PREGABALIN
     Route: 065
     Dates: start: 20181127, end: 20181203
  15. LACTULOSA [Concomitant]
     Active Substance: LACTULOSE
     Indication: ABDOMINAL PAIN
     Route: 065
     Dates: start: 20181202, end: 20181203
  16. DEXAMETHASONE. [Concomitant]
     Active Substance: DEXAMETHASONE
     Indication: IMMUNE-MEDIATED ADVERSE REACTION
     Route: 048
     Dates: start: 20181129, end: 20181205
  17. ADIRO [Concomitant]
     Active Substance: ASPIRIN
     Indication: THROMBOSIS PROPHYLAXIS
  18. OMEPRAZOL [Concomitant]
     Active Substance: OMEPRAZOLE
     Dosage: GASTROINTESTINAL REFLUXE
     Route: 065
  19. TIAMAZOL [Concomitant]
     Route: 065
     Dates: start: 20181128
  20. DEXAMETHASONE. [Concomitant]
     Active Substance: DEXAMETHASONE
     Route: 048
     Dates: start: 20181205, end: 20181210
  21. FUROSEMIDA [Concomitant]
     Active Substance: FUROSEMIDE
     Indication: ASTHENIA
     Route: 065
     Dates: start: 20181217, end: 20181221
  22. AMITRIPTILINA [Concomitant]
     Active Substance: AMITRIPTYLINE HYDROCHLORIDE
     Route: 065
     Dates: start: 20181127, end: 20181203
  23. DEXAMETHASONE. [Concomitant]
     Active Substance: DEXAMETHASONE
     Route: 048
  24. AMOXICILLIN. [Concomitant]
     Active Substance: AMOXICILLIN
     Indication: IMMUNE-MEDIATED ADVERSE REACTION
     Route: 065
     Dates: start: 20181120, end: 20181123
  25. CISPLATIN. [Suspect]
     Active Substance: CISPLATIN
     Indication: NON-SMALL CELL LUNG CANCER
     Dosage: DOSE OF LAST CISPLATIN ADMINISTERED 1200 MG
     Route: 042
     Dates: start: 20180712
  26. PREDNISONA [Concomitant]
     Active Substance: PREDNISONE
     Route: 048
     Dates: start: 20190222
  27. TIAMAZOL [Concomitant]
     Route: 065
     Dates: start: 20181210, end: 20181221
  28. METAMIZOL [Concomitant]
     Active Substance: METAMIZOLE SODIUM
     Indication: TUMOUR PAIN
     Route: 065
     Dates: start: 20181211, end: 20181221
  29. METILPREDNISOLONA [Concomitant]
     Active Substance: METHYLPREDNISOLONE
     Route: 042
     Dates: start: 20181210, end: 20181218
  30. PREDNISONA [Concomitant]
     Active Substance: PREDNISONE
     Route: 048
     Dates: start: 20181218, end: 20181219
  31. PREDNISONA [Concomitant]
     Active Substance: PREDNISONE
     Route: 048
     Dates: start: 20181219, end: 20181228
  32. PREDNISONA [Concomitant]
     Active Substance: PREDNISONE
     Route: 048
     Dates: start: 20190208, end: 20190222
  33. PARACETAMOL [Concomitant]
     Active Substance: ACETAMINOPHEN
     Route: 065
     Dates: start: 20181123, end: 20181130
  34. BROMAZEPAM [Concomitant]
     Active Substance: BROMAZEPAM
     Indication: ASTHENIA
     Route: 065
     Dates: start: 20181211, end: 20181219
  35. BROMAZEPAM [Concomitant]
     Active Substance: BROMAZEPAM
     Route: 065
     Dates: start: 20181127, end: 20181203
  36. PEMETREXED. [Suspect]
     Active Substance: PEMETREXED
     Indication: NON-SMALL CELL LUNG CANCER
     Route: 042
     Dates: start: 20180712
  37. IDEOS [Concomitant]
     Active Substance: CALCIUM CARBONATE\CHOLECALCIFEROL
     Indication: OSTEOPOROSIS PROPHYLAXIS
  38. ENOXAPARINA [Concomitant]
     Active Substance: ENOXAPARIN
     Route: 065
     Dates: start: 20181124, end: 20181203
  39. PARACETAMOL [Concomitant]
     Active Substance: ACETAMINOPHEN
     Route: 065
     Dates: start: 20181210, end: 20181221

REACTIONS (1)
  - Axonal neuropathy [Recovering/Resolving]

NARRATIVE: CASE EVENT DATE: 20181210
